FAERS Safety Report 8499041-7 (Version None)
Quarter: 2012Q3

REPORT INFORMATION
  Report Type: 
  Country: None (occurrence: None)
  Receive Date: 20120710
  Receipt Date: 20120622
  Transmission Date: 20120928
  Serious: Yes (Death, Disabling)
  Sender: FDA-Public Use
  Company Number: US-009507513-2012SP035445

PATIENT

DRUGS (2)
  1. NOXAFIL [Suspect]
     Indication: FUNGAL INFECTION
     Dosage: 400 MG, BID
     Route: 048
  2. AMPHOTERICIN B [Concomitant]
     Indication: ERYTHEMA
     Dosage: 250 MG, QD
     Route: 042

REACTIONS (1)
  - DISEASE PROGRESSION [None]
